FAERS Safety Report 16932951 (Version 4)
Quarter: 2020Q3

REPORT INFORMATION
  Report Type: Report from Study
  Country: BR (occurrence: BR)
  Receive Date: 20191018
  Receipt Date: 20200710
  Transmission Date: 20201102
  Serious: No
  Sender: FDA-Public Use
  Company Number: BR-BIOGEN-2019BI00796715

PATIENT
  Age: 32 Year
  Sex: Female

DRUGS (7)
  1. AVONEX PEN [Suspect]
     Active Substance: INTERFERON BETA-1A
     Route: 030
     Dates: end: 201908
  2. LYRICA [Concomitant]
     Active Substance: PREGABALIN
     Indication: GAIT DISTURBANCE
     Route: 065
  3. PURAN [Concomitant]
     Active Substance: LEVOTHYROXINE SODIUM
     Indication: PRODUCT USED FOR UNKNOWN INDICATION
     Route: 065
  4. AVONEX PEN [Suspect]
     Active Substance: INTERFERON BETA-1A
     Route: 030
     Dates: end: 201906
  5. AVONEX PEN [Suspect]
     Active Substance: INTERFERON BETA-1A
     Route: 030
     Dates: start: 201405, end: 201906
  6. AVONEX PEN [Suspect]
     Active Substance: INTERFERON BETA-1A
     Indication: MULTIPLE SCLEROSIS
     Route: 030
     Dates: start: 201401
  7. AVONEX PEN [Suspect]
     Active Substance: INTERFERON BETA-1A
     Route: 030
     Dates: start: 201405

REACTIONS (10)
  - Influenza [Recovered/Resolved]
  - Multiple sclerosis [Unknown]
  - Drug intolerance [Unknown]
  - Tremor [Recovered/Resolved]
  - Influenza like illness [Recovered/Resolved]
  - Onychoclasis [Recovered/Resolved]
  - Thyroid mass [Unknown]
  - Alopecia [Recovered/Resolved]
  - Pain [Not Recovered/Not Resolved]
  - Pyrexia [Unknown]

NARRATIVE: CASE EVENT DATE: 201404
